FAERS Safety Report 23044887 (Version 2)
Quarter: 2023Q4

REPORT INFORMATION
  Report Type: Spontaneous
  Country: US (occurrence: US)
  Receive Date: 20231009
  Receipt Date: 20231108
  Transmission Date: 20240110
  Serious: Yes (Hospitalization)
  Sender: FDA-Public Use
  Company Number: US-PFIZER INC-PV202300162677

PATIENT
  Age: 82 Year
  Sex: Male

DRUGS (1)
  1. INLYTA [Suspect]
     Active Substance: AXITINIB
     Dosage: 5 MG
     Dates: end: 20231026

REACTIONS (8)
  - Sepsis [Unknown]
  - Lethargy [Unknown]
  - Anger [Unknown]
  - Mood altered [Unknown]
  - Agitation [Unknown]
  - Oral pain [Unknown]
  - Oropharyngeal pain [Unknown]
  - Product dose omission issue [Unknown]
